FAERS Safety Report 13383277 (Version 1)
Quarter: 2017Q1

REPORT INFORMATION
  Report Type: Spontaneous
  Country: US (occurrence: US)
  Receive Date: 20170329
  Receipt Date: 20170329
  Transmission Date: 20170429
  Serious: No
  Sender: FDA-Public Use
  Company Number: US-RISING PHARMACEUTICALS, INC.-2016RIS00118

PATIENT
  Sex: Male

DRUGS (1)
  1. OFLOXACIN. [Suspect]
     Active Substance: OFLOXACIN

REACTIONS (1)
  - Vision blurred [Not Recovered/Not Resolved]
